FAERS Safety Report 8274295-0 (Version None)
Quarter: 2012Q2

REPORT INFORMATION
  Report Type: 
  Country: None (occurrence: None)
  Receive Date: 20120411
  Receipt Date: 20120411
  Transmission Date: 20120825
  Serious: No
  Sender: FDA-Public Use
  Company Number: None

PATIENT
  Sex: Female
  Weight: 136.07 kg

DRUGS (1)
  1. LISINOPRIL AND HYDROCHLOROTHIAZIDE [Suspect]
     Indication: BLOOD PRESSURE INCREASED
     Dosage: 1 TABLET
     Route: 048
     Dates: start: 20120315, end: 20120411

REACTIONS (6)
  - OROPHARYNGEAL PAIN [None]
  - INSOMNIA [None]
  - COUGH [None]
  - PALPITATIONS [None]
  - VOMITING [None]
  - RETCHING [None]
